FAERS Safety Report 9110442 (Version 1)
Quarter: 2013Q1

REPORT INFORMATION
  Report Type: Spontaneous
  Country: US (occurrence: US)
  Receive Date: 20130219
  Receipt Date: 20130219
  Transmission Date: 20140127
  Serious: Yes (Other)
  Sender: FDA-Public Use
  Company Number: US-BRACCO-007511

PATIENT
  Sex: Female

DRUGS (2)
  1. ISOVUE 370 [Suspect]
     Indication: STENT PLACEMENT
     Route: 013
     Dates: start: 201201, end: 201201
  2. ISOVUE 370 [Suspect]
     Indication: CATHETERISATION CARDIAC
     Route: 013
     Dates: start: 201201, end: 201201

REACTIONS (2)
  - Anaphylactic reaction [Unknown]
  - Ischaemia [Unknown]
